FAERS Safety Report 4308629-6 (Version None)
Quarter: 2004Q1

REPORT INFORMATION
  Report Type: 
  Country: None (occurrence: None)
  Receive Date: 20040226
  Receipt Date: 20030328
  Transmission Date: 20041129
  Serious: No
  Sender: FDA-Public Use
  Company Number: 200477

PATIENT
  Age: 16 Year
  Sex: Male
  Weight: 57.2 kg

DRUGS (1)
  1. NUTROPIN [Suspect]
     Indication: GROWTH HORMONE DEFICIENCY
     Dosage: 1.5 MG, QD, SUBCUTANEOUS
     Route: 058
     Dates: start: 20020823, end: 20030109

REACTIONS (1)
  - BENIGN INTRACRANIAL HYPERTENSION [None]
